FAERS Safety Report 8483528-7 (Version None)
Quarter: 2012Q3

REPORT INFORMATION
  Report Type: 
  Country: None (occurrence: None)
  Receive Date: 20120702
  Receipt Date: 20120629
  Transmission Date: 20120928
  Serious: Yes (Other)
  Sender: FDA-Public Use
  Company Number: US-MERCK-1206USA03782

PATIENT
  Age: 76 Year
  Sex: Male

DRUGS (9)
  1. MAXZIDE [Concomitant]
     Route: 065
  2. GLYBURIDE [Concomitant]
     Route: 065
  3. LASIX [Concomitant]
     Route: 065
  4. OMEPRAZOLE [Concomitant]
     Route: 065
  5. ASPIRIN [Concomitant]
     Route: 065
  6. POTASSIUM CHLORIDE [Concomitant]
     Route: 065
  7. JANUVIA [Suspect]
     Indication: TYPE 2 DIABETES MELLITUS
     Route: 048
     Dates: start: 20071001
  8. METFORMIN [Concomitant]
     Route: 065
  9. SIMVASTATIN [Concomitant]
     Route: 065

REACTIONS (2)
  - HAEMORRHAGE [None]
  - ANAEMIA [None]
